FAERS Safety Report 17577636 (Version 2)
Quarter: 2020Q1

REPORT INFORMATION
  Report Type: Report from Study
  Country: BE (occurrence: BE)
  Receive Date: 20200324
  Receipt Date: 20200330
  Transmission Date: 20200409
  Serious: Yes (Other)
  Sender: FDA-Public Use
  Company Number: BE-BAYER-2019-058927

PATIENT
  Age: 77 Year
  Sex: Female

DRUGS (12)
  1. STIVARGA [Suspect]
     Active Substance: REGORAFENIB
     Indication: COLORECTAL CANCER
     Dosage: 80 MG DAILY
     Dates: start: 20190923, end: 20200318
  2. STIVARGA [Suspect]
     Active Substance: REGORAFENIB
     Indication: COLORECTAL CANCER
     Dosage: 80 MG DAILY
     Dates: start: 20190311, end: 20190905
  3. ATORSTATINEG [Concomitant]
     Dosage: 20 MG
  4. TENORETIC [Concomitant]
     Active Substance: ATENOLOL\CHLORTHALIDONE
     Dosage: 100 MG
  5. PERINDOPRIL [Concomitant]
     Active Substance: PERINDOPRIL
     Dosage: UNK
     Dates: end: 202001
  6. BURINEX [Concomitant]
     Active Substance: BUMETANIDE
     Indication: OEDEMA
     Dosage: 1 MG
     Dates: start: 20190606
  7. ASAFLOW [Concomitant]
     Active Substance: ASPIRIN
     Dosage: 80 MG
  8. STAPHYCID [Concomitant]
     Dosage: 3X/D
     Dates: start: 20190904
  9. AMLOR [Concomitant]
     Active Substance: AMLODIPINE BESYLATE
     Indication: HYPERTENSION
     Dosage: 5 MG
     Dates: start: 202001
  10. SIPRALEXA [Concomitant]
     Active Substance: ESCITALOPRAM OXALATE
     Dosage: 10 MG
  11. CLINDAMYCIN. [Concomitant]
     Active Substance: CLINDAMYCIN
     Indication: BACTERIAL VULVOVAGINITIS
     Dosage: 600 MG, TID
     Dates: start: 20190814, end: 20190820
  12. PERINDOPRIL [Concomitant]
     Active Substance: PERINDOPRIL
     Dosage: UNK
     Dates: end: 202001

REACTIONS (54)
  - Feeling drunk [Recovering/Resolving]
  - Breast enlargement [Recovering/Resolving]
  - Headache [Recovering/Resolving]
  - Herpes zoster [Recovering/Resolving]
  - Palmar-plantar erythrodysaesthesia syndrome [Recovering/Resolving]
  - Colorectal cancer [Unknown]
  - Erythema [Recovering/Resolving]
  - Muscle spasms [Recovering/Resolving]
  - Dysphonia [None]
  - Off label use [None]
  - Myalgia [None]
  - Fatigue [Not Recovered/Not Resolved]
  - Hypertension [Recovering/Resolving]
  - Diarrhoea [Not Recovered/Not Resolved]
  - Decreased appetite [None]
  - Localised oedema [Recovering/Resolving]
  - Chills [None]
  - Fall [None]
  - Tremor [None]
  - Dysphonia [Recovering/Resolving]
  - Gait disturbance [Recovering/Resolving]
  - Paraesthesia [None]
  - Fatigue [Recovering/Resolving]
  - Decreased appetite [None]
  - Diarrhoea [Recovering/Resolving]
  - Dry mouth [Not Recovered/Not Resolved]
  - Diarrhoea [None]
  - Pruritus [None]
  - Headache [Recovering/Resolving]
  - Head discomfort [None]
  - Palmar-plantar erythrodysaesthesia syndrome [Recovering/Resolving]
  - Weight decreased [Recovering/Resolving]
  - Hunger [None]
  - Frequent bowel movements [Recovering/Resolving]
  - Hypoaesthesia [None]
  - Limb discomfort [None]
  - Dizziness [Recovering/Resolving]
  - Visual impairment [None]
  - Chills [None]
  - Vertigo [None]
  - Limb injury [Recovering/Resolving]
  - Decreased appetite [Recovering/Resolving]
  - Weight decreased [Recovering/Resolving]
  - Rash vesicular [Recovering/Resolving]
  - Alopecia [Recovering/Resolving]
  - Dizziness [Recovering/Resolving]
  - Dyspnoea exertional [Recovering/Resolving]
  - Oral pain [None]
  - Dry mouth [Recovering/Resolving]
  - Muscular weakness [None]
  - Dysgraphia [Not Recovered/Not Resolved]
  - Lip dry [Not Recovered/Not Resolved]
  - Feeling abnormal [Recovering/Resolving]
  - Pain in extremity [None]

NARRATIVE: CASE EVENT DATE: 201903
